FAERS Safety Report 5425746-8 (Version None)
Quarter: 2007Q3

REPORT INFORMATION
  Report Type: 
  Country: None (occurrence: None)
  Receive Date: 20070731
  Receipt Date: 20070606
  Transmission Date: 20080115
  Serious: No
  Sender: FDA-Public Use
  Company Number: 2007PV031784

PATIENT
  Age: 55 Year
  Sex: Male
  Weight: 108.9 kg

DRUGS (8)
  1. EXENATIDE(EXENATIDE) PEN,DISPOSABLE [Suspect]
     Indication: TYPE 2 DIABETES MELLITUS
     Dosage: 5 UG, 2/D, SUBCUTANEOUS, 10 UG,2/D, SUBCUTANEOUS, 5 UG, SUBCUTANEOUS
     Route: 058
     Dates: start: 20070101, end: 20070101
  2. EXENATIDE(EXENATIDE) PEN,DISPOSABLE [Suspect]
     Indication: TYPE 2 DIABETES MELLITUS
     Dosage: 5 UG, 2/D, SUBCUTANEOUS, 10 UG,2/D, SUBCUTANEOUS, 5 UG, SUBCUTANEOUS
     Route: 058
     Dates: start: 20070306, end: 20070101
  3. EXENATIDE(EXENATIDE) PEN,DISPOSABLE [Suspect]
     Indication: TYPE 2 DIABETES MELLITUS
     Dosage: 5 UG, 2/D, SUBCUTANEOUS, 10 UG,2/D, SUBCUTANEOUS, 5 UG, SUBCUTANEOUS
     Route: 058
     Dates: start: 20070101
  4. GLYBURIDE AND METFORMIN [Concomitant]
  5. DUETACT [Concomitant]
  6. JUNUVIA [Concomitant]
  7. GLYBURIDE [Concomitant]
  8. ACTOS [Concomitant]

REACTIONS (4)
  - BLOOD GLUCOSE DECREASED [None]
  - BLOOD GLUCOSE INCREASED [None]
  - DECREASED APPETITE [None]
  - TREMOR [None]
